FAERS Safety Report 10436508 (Version 1)
Quarter: 2014Q3

REPORT INFORMATION
  Report Type: Spontaneous
  Country: US (occurrence: US)
  Receive Date: 20140908
  Receipt Date: 20140908
  Transmission Date: 20150326
  Serious: No
  Sender: FDA-Public Use
  Company Number: US-BRISTOL-MYERS SQUIBB COMPANY-19508324

PATIENT
  Age: 37 Year
  Sex: Female
  Weight: 99.77 kg

DRUGS (3)
  1. ATIVAN [Suspect]
     Active Substance: LORAZEPAM
     Dosage: 1DF: 1PILL AT NIGHT
  2. DEPAKOTE [Suspect]
     Active Substance: DIVALPROEX SODIUM
     Dosage: AT NIGHT
  3. ABILIFY [Suspect]
     Active Substance: ARIPIPRAZOLE
     Indication: DEPRESSION
     Dates: start: 20130826

REACTIONS (4)
  - Erythema [Unknown]
  - Chest pain [Unknown]
  - Nervousness [Unknown]
  - Dyspnoea [Unknown]
